FAERS Safety Report 21033445 (Version 1)
Quarter: 2022Q3

REPORT INFORMATION
  Report Type: Spontaneous
  Country: US (occurrence: US)
  Receive Date: 20220701
  Receipt Date: 20220701
  Transmission Date: 20221027
  Serious: No
  Sender: FDA-Public Use
  Company Number: US-009507513-2207USA000029

PATIENT
  Sex: Female

DRUGS (2)
  1. KEYTRUDA [Suspect]
     Active Substance: PEMBROLIZUMAB
     Indication: Renal cell carcinoma
     Dosage: UNK, EVERY 3
     Route: 042
     Dates: start: 20220426
  2. LENVATINIB MESYLATE [Suspect]
     Active Substance: LENVATINIB MESYLATE
     Indication: Renal cell carcinoma
     Dosage: 20 MILLIGRAM, DAILY DOSE
     Route: 048
     Dates: start: 20220513

REACTIONS (3)
  - Dizziness [Unknown]
  - Hypertension [Unknown]
  - Generalised oedema [Unknown]

NARRATIVE: CASE EVENT DATE: 20220501
